FAERS Safety Report 23116552 (Version 2)
Quarter: 2023Q4

REPORT INFORMATION
  Report Type: Report from Study
  Country: US (occurrence: US)
  Receive Date: 20231027
  Receipt Date: 20231113
  Transmission Date: 20240110
  Serious: Yes (Hospitalization)
  Sender: FDA-Public Use
  Company Number: US-ALNYLAM PHARMACEUTICALS, INC.-ALN-2023-005691

PATIENT

DRUGS (1)
  1. ONPATTRO [Suspect]
     Active Substance: PATISIRAN SODIUM
     Indication: Hereditary neuropathic amyloidosis
     Dosage: 30 MILLIGRAM, EVERY 3 WEEKS (Q3W)
     Route: 042
     Dates: start: 20220915

REACTIONS (8)
  - Pyrexia [Unknown]
  - Fall [Unknown]
  - Anaemia [Unknown]
  - Contusion [Unknown]
  - Peripheral swelling [Unknown]
  - Muscle swelling [Unknown]
  - Asthenia [Unknown]
  - Tremor [Unknown]
